FAERS Safety Report 4564679-6 (Version None)
Quarter: 2005Q1

REPORT INFORMATION
  Report Type: 
  Country: None (occurrence: None)
  Receive Date: 20050126
  Receipt Date: 20050107
  Transmission Date: 20050727
  Serious: Yes (Disabling)
  Sender: FDA-Public Use
  Company Number: EWC050142167

PATIENT
  Age: 74 Year
  Sex: Male

DRUGS (3)
  1. ALIMTA [Suspect]
     Indication: MESOTHELIOMA
     Dosage: 1000 MG
     Dates: start: 20041221, end: 20041221
  2. CARBOPLATIN [Concomitant]
  3. SIFROL (PRAMIPEXOLE DIHYDROCHLORIDE) [Concomitant]

REACTIONS (5)
  - C-REACTIVE PROTEIN INCREASED [None]
  - DIFFICULTY IN WALKING [None]
  - FEELING HOT AND COLD [None]
  - HYPOAESTHESIA [None]
  - RED BLOOD CELL SEDIMENTATION RATE INCREASED [None]
